FAERS Safety Report 5298842-6 (Version None)
Quarter: 2007Q2

REPORT INFORMATION
  Report Type: 
  Country: None (occurrence: None)
  Receive Date: 20070410
  Receipt Date: 20070403
  Transmission Date: 20071010
  Serious: Yes (Hospitalization)
  Sender: FDA-Public Use
  Company Number: A0645768A

PATIENT
  Age: 34 Year
  Sex: Female

DRUGS (2)
  1. IMITREX [Suspect]
     Indication: MIGRAINE
     Dosage: 50 MG/AS REQUIRED/ORAL
     Route: 048
     Dates: start: 20070402, end: 20070402
  2. PARACETAMOL [Concomitant]

REACTIONS (6)
  - CONVULSION [None]
  - INCONTINENCE [None]
  - LETHARGY [None]
  - MIGRAINE [None]
  - TONGUE BITING [None]
  - URINARY INCONTINENCE [None]
